FAERS Safety Report 9296225 (Version 2)
Quarter: 2013Q2

REPORT INFORMATION
  Report Type: Spontaneous
  Country: JP (occurrence: JP)
  Receive Date: 20130517
  Receipt Date: 20130603
  Transmission Date: 20140414
  Serious: Yes (Hospitalization)
  Sender: FDA-Public Use
  Company Number: JP-GLAXOSMITHKLINE-B0891574A

PATIENT
  Age: 63 Year
  Sex: Female

DRUGS (4)
  1. VALTREX [Suspect]
     Indication: HERPES SIMPLEX
     Dosage: 500MG TWICE PER DAY
     Route: 048
     Dates: start: 20130501, end: 20130502
  2. PRAVASTATIN SODIUM [Suspect]
     Route: 048
  3. MEXITIL [Suspect]
     Route: 048
  4. LABETALOL [Suspect]
     Route: 048

REACTIONS (10)
  - Stevens-Johnson syndrome [Unknown]
  - Erythema multiforme [Unknown]
  - Rash [Unknown]
  - Rash generalised [Unknown]
  - General symptom [Unknown]
  - Eyelid oedema [Unknown]
  - Oral mucosa erosion [Unknown]
  - Lip erosion [Unknown]
  - Pyrexia [Unknown]
  - Malaise [Unknown]
